FAERS Safety Report 24335720 (Version 1)
Quarter: 2024Q3

REPORT INFORMATION
  Report Type: Spontaneous
  Country: GB (occurrence: GB)
  Receive Date: 20240919
  Receipt Date: 20240919
  Transmission Date: 20241017
  Serious: Yes (Other)
  Sender: NOVO NORDISK
  Company Number: GB-NOVOPROD-1281436

PATIENT
  Sex: Male

DRUGS (2)
  1. FIASP [Suspect]
     Active Substance: INSULIN ASPART
     Indication: Latent autoimmune diabetes in adults
     Dosage: 14 TO 16 UNITS
  2. FIASP [Suspect]
     Active Substance: INSULIN ASPART
     Dosage: 56 UNITS

REACTIONS (6)
  - Coeliac disease [Unknown]
  - Blood glucose increased [Unknown]
  - Glycosylated haemoglobin increased [Unknown]
  - Therapeutic product effect delayed [Unknown]
  - Incorrect dose administered [Unknown]
  - Drug ineffective [Unknown]
